FAERS Safety Report 24120912 (Version 1)
Quarter: 2024Q3

REPORT INFORMATION
  Report Type: Spontaneous
  Country: US (occurrence: US)
  Receive Date: 20240722
  Receipt Date: 20240722
  Transmission Date: 20241016
  Serious: Yes (Other)
  Sender: CHIESI
  Company Number: US-CHIESI-2024CHF04410

PATIENT
  Age: 43 Year
  Sex: Female

DRUGS (1)
  1. ELFABRIO [Suspect]
     Active Substance: PEGUNIGALSIDASE ALFA-IWXJ
     Indication: Product used for unknown indication
     Dosage: 120 MILLIGRAM, QOW
     Route: 042

REACTIONS (4)
  - Oral disorder [Unknown]
  - Renal disorder [Unknown]
  - Fall [Unknown]
  - Ligament sprain [Unknown]

NARRATIVE: CASE EVENT DATE: 20240701
